FAERS Safety Report 7441026-3 (Version None)
Quarter: 2011Q2

REPORT INFORMATION
  Report Type: 
  Country: None (occurrence: None)
  Receive Date: 20110427
  Receipt Date: 20110418
  Transmission Date: 20111010
  Serious: Yes (Death, Hospitalization, Other)
  Sender: FDA-Public Use
  Company Number: US-AMGEN-US326757

PATIENT
  Age: 53 Year
  Sex: Male
  Weight: 88.5 kg

DRUGS (4)
  1. ARANESP [Suspect]
     Indication: ANAEMIA OF MALIGNANT DISEASE
     Dosage: UNK UNK, UNK
     Dates: end: 20071101
  2. PROCRIT [Suspect]
     Indication: ANAEMIA OF MALIGNANT DISEASE
     Dosage: 40000 IU, QD
     Route: 058
     Dates: start: 20080111, end: 20080111
  3. DEXAMETHASONE [Concomitant]
     Dosage: UNK UNK, UNK
  4. MORPHINE SULFATE [Concomitant]
     Dosage: 60 MG, BID

REACTIONS (8)
  - MOUTH HAEMORRHAGE [None]
  - DEHYDRATION [None]
  - HAEMOGLOBIN DECREASED [None]
  - CONFUSIONAL STATE [None]
  - BLOOD PRESSURE DECREASED [None]
  - METASTASES TO CENTRAL NERVOUS SYSTEM [None]
  - CONSTIPATION [None]
  - EPISTAXIS [None]
